FAERS Safety Report 7030462-5 (Version None)
Quarter: 2010Q4

REPORT INFORMATION
  Report Type: 
  Country: None (occurrence: None)
  Receive Date: 20101006
  Receipt Date: 20100927
  Transmission Date: 20110411
  Serious: Yes (Other)
  Sender: FDA-Public Use
  Company Number: US-ASTRAZENECA-2010SE45334

PATIENT
  Sex: Female

DRUGS (1)
  1. NOLVADEX [Suspect]
     Route: 048
     Dates: start: 20070201

REACTIONS (1)
  - ELECTROCARDIOGRAM QT PROLONGED [None]
